FAERS Safety Report 8428753-6 (Version None)
Quarter: 2012Q2

REPORT INFORMATION
  Report Type: 
  Country: None (occurrence: None)
  Receive Date: 20120606
  Receipt Date: 20120529
  Transmission Date: 20120825
  Serious: Yes (Death)
  Sender: FDA-Public Use
  Company Number: 2012-2438

PATIENT
  Age: 13 Year
  Sex: Male

DRUGS (1)
  1. INCRELEX [Suspect]
     Indication: FAILURE TO THRIVE
     Dosage: 60 UNITS (30 UNITS, 2 IN 1 D), SUBCUTANEOUS
     Route: 058
     Dates: start: 20110419

REACTIONS (1)
  - ROAD TRAFFIC ACCIDENT [None]
